FAERS Safety Report 4338887-3 (Version None)
Quarter: 2004Q2

REPORT INFORMATION
  Report Type: 
  Country: None (occurrence: None)
  Receive Date: 20040409
  Receipt Date: 20040402
  Transmission Date: 20050107
  Serious: Yes (Life-Threatening)
  Sender: FDA-Public Use
  Company Number: 200410184BYL

PATIENT
  Age: 43 Year
  Sex: Male

DRUGS (8)
  1. CIPROFLOXACIN [Suspect]
     Indication: PNEUMONIA
     Dates: start: 20040330, end: 20040402
  2. ZANTAC [Suspect]
  3. DEPAKENE [Concomitant]
     Indication: EPILEPSY
     Dosage: ORAL
     Route: 048
  4. FIRSTCIN [Concomitant]
  5. CLEANAL [Concomitant]
  6. DIPYRIDAMOLE [Concomitant]
  7. VEEN D [Concomitant]
  8. SOLU-MEDROL [Concomitant]

REACTIONS (3)
  - ASPARTATE AMINOTRANSFERASE INCREASED [None]
  - BLOOD LACTATE DEHYDROGENASE INCREASED [None]
  - RHABDOMYOLYSIS [None]
